FAERS Safety Report 5355895-4 (Version None)
Quarter: 2007Q2

REPORT INFORMATION
  Report Type: 
  Country: None (occurrence: None)
  Receive Date: 20070530
  Receipt Date: 20070125
  Transmission Date: 20071010
  Serious: Yes (Hospitalization)
  Sender: FDA-Public Use
  Company Number: US200609007388

PATIENT
  Age: 59 Year
  Sex: Female
  Weight: 51.2 kg

DRUGS (2)
  1. ZYPREXA [Suspect]
     Dates: start: 20000501, end: 20010101
  2. HALDOL(HALOPERIDOL DECANOATE) [Concomitant]
     Dates: start: 20000501, end: 20010101

REACTIONS (2)
  - CHEST PAIN [None]
  - DIABETES MELLITUS [None]
